FAERS Safety Report 4329041-X (Version None)
Quarter: 2004Q1

REPORT INFORMATION
  Report Type: 
  Country: None (occurrence: None)
  Receive Date: 20040331
  Receipt Date: 20040331
  Transmission Date: 20041129
  Serious: Yes (Hospitalization)
  Sender: FDA-Public Use
  Company Number: None

PATIENT
  Age: 77 Year
  Sex: Male
  Weight: 113 kg

DRUGS (1)
  1. VANCOMYCIN [Suspect]
     Indication: INFECTION
     Dosage: 1000 MG Q12 H IV
     Route: 042
     Dates: start: 20040112, end: 20040117

REACTIONS (2)
  - DRUG RESISTANCE [None]
  - PYREXIA [None]
